FAERS Safety Report 9282431 (Version 1)
Quarter: 2013Q2

REPORT INFORMATION
  Report Type: Spontaneous
  Country: US (occurrence: None)
  Receive Date: 20130509
  Receipt Date: 20130509
  Transmission Date: 20140414
  Serious: Yes (Hospitalization)
  Sender: FDA-Public Use
  Company Number: None

PATIENT
  Age: 48 Year
  Sex: Male
  Weight: 134 kg

DRUGS (2)
  1. METHOTREXATE [Suspect]
  2. TEMOZOLOMIDE [Suspect]

REACTIONS (3)
  - Pulmonary embolism [None]
  - Klebsiella test positive [None]
  - Device related infection [None]
